FAERS Safety Report 11427237 (Version 1)
Quarter: 2015Q3

REPORT INFORMATION
  Report Type: Spontaneous
  Country: US (occurrence: US)
  Receive Date: 20150827
  Receipt Date: 20150827
  Transmission Date: 20151125
  Serious: No
  Sender: FDA-Public Use
  Company Number: US-SA-2014SA114135

PATIENT
  Age: 43 Year
  Sex: Male

DRUGS (4)
  1. FABRAZYME [Suspect]
     Active Substance: AGALSIDASE BETA
     Indication: FABRY^S DISEASE
     Route: 042
     Dates: start: 2003
  2. LISINOPRIL. [Concomitant]
     Active Substance: LISINOPRIL
  3. PROPECIA [Concomitant]
     Active Substance: FINASTERIDE
  4. ASPIRIN. [Concomitant]
     Active Substance: ASPIRIN

REACTIONS (1)
  - Globotriaosylceramide increased [Not Recovered/Not Resolved]
